FAERS Safety Report 9712146 (Version 1)
Quarter: 2013Q4

REPORT INFORMATION
  Report Type: Spontaneous
  Country: US (occurrence: US)
  Receive Date: 20131126
  Receipt Date: 20131126
  Transmission Date: 20140711
  Serious: Yes (Other)
  Sender: FDA-Public Use
  Company Number: US-BAYER-2013-141256

PATIENT
  Sex: Female

DRUGS (5)
  1. NEO-SYNEPHRINE COLD + SINUS REGULAR STRENGTH [Suspect]
  2. BAYER GENUINE ASPIRIN ORIGINAL STRENGTH [Suspect]
  3. METOPROLOL [Concomitant]
  4. LISINOPRIL [Concomitant]
  5. MYSOLINE [Concomitant]

REACTIONS (3)
  - Poisoning [None]
  - Pharyngeal oedema [Not Recovered/Not Resolved]
  - Drug hypersensitivity [None]
